FAERS Safety Report 11329011 (Version 1)
Quarter: 2015Q3

REPORT INFORMATION
  Report Type: Spontaneous
  Country: FR (occurrence: FR)
  Receive Date: 20150802
  Receipt Date: 20150802
  Transmission Date: 20151125
  Serious: Yes (Other)
  Sender: FDA-Public Use
  Company Number: FR-BAYER-2015-358496

PATIENT
  Age: 30 Year
  Sex: Female
  Weight: 65 kg

DRUGS (1)
  1. JAYDESS [Suspect]
     Active Substance: LEVONORGESTREL
     Indication: CONTRACEPTION
     Dosage: 14 MCG/24HR, CONT
     Route: 015
     Dates: start: 20150330

REACTIONS (5)
  - Pregnancy with contraceptive device [None]
  - Haemorrhagic ovarian cyst [None]
  - Abortion spontaneous [None]
  - Human chorionic gonadotropin decreased [None]
  - Drug ineffective [None]

NARRATIVE: CASE EVENT DATE: 20150608
